FAERS Safety Report 11224867 (Version 2)
Quarter: 2015Q3

REPORT INFORMATION
  Report Type: Spontaneous
  Country: JP (occurrence: JP)
  Receive Date: 20150629
  Receipt Date: 20150724
  Transmission Date: 20151125
  Serious: Yes (Hospitalization)
  Sender: FDA-Public Use
  Company Number: JP-BAYER-2015-360431

PATIENT
  Age: 72 Year
  Sex: Female

DRUGS (5)
  1. HYDROXYUREA. [Suspect]
     Active Substance: HYDROXYUREA
     Dosage: 1000 MG, PER DAY
     Route: 048
     Dates: start: 2013
  2. HYDROXYUREA. [Suspect]
     Active Substance: HYDROXYUREA
     Dosage: 1500 MG, PER DAY
     Route: 048
     Dates: end: 201302
  3. HYDROXYUREA. [Suspect]
     Active Substance: HYDROXYUREA
     Dosage: UNK
     Route: 048
  4. BAYASPIRIN [Suspect]
     Active Substance: ASPIRIN
     Dosage: UNK
     Route: 048
     Dates: start: 1996, end: 201302
  5. HYDROXYUREA. [Suspect]
     Active Substance: HYDROXYUREA
     Dosage: 50 MG, PER DAY
     Route: 048
     Dates: start: 1996

REACTIONS (1)
  - Hepatitis B [Recovering/Resolving]

NARRATIVE: CASE EVENT DATE: 201302
